FAERS Safety Report 7823190-7 (Version None)
Quarter: 2011Q4

REPORT INFORMATION
  Report Type: 
  Country: None (occurrence: None)
  Receive Date: 20111019
  Receipt Date: 20111012
  Transmission Date: 20120403
  Serious: No
  Sender: FDA-Public Use
  Company Number: US-BIOGENIDEC-2011BI038952

PATIENT
  Age: 52 Year
  Sex: Female

DRUGS (3)
  1. TYSABRI [Suspect]
     Route: 042
     Dates: start: 20050202
  2. AVONEX [Concomitant]
     Indication: MULTIPLE SCLEROSIS
     Route: 030
     Dates: start: 19980401
  3. TYSABRI [Suspect]
     Indication: MULTIPLE SCLEROSIS
     Route: 042
     Dates: start: 20081010

REACTIONS (2)
  - URINARY TRACT INFECTION [None]
  - PAIN IN EXTREMITY [None]
